FAERS Safety Report 25858774 (Version 3)
Quarter: 2025Q4

REPORT INFORMATION
  Report Type: Report from Study
  Country: AE (occurrence: US)
  Receive Date: 20250929
  Receipt Date: 20251022
  Transmission Date: 20260117
  Serious: Yes (Hospitalization)
  Sender: ACADIA PHARMACEUTICALS
  Company Number: AE-ACADIA PHARMACEUTICALS INC.-ACA-2025-TRF-010634

PATIENT
  Sex: Female

DRUGS (1)
  1. DAYBUE [Suspect]
     Active Substance: TROFINETIDE
     Indication: Rett syndrome
     Dosage: 50 MILLILITER, BID

REACTIONS (2)
  - Influenza [Unknown]
  - Product dose omission issue [Not Recovered/Not Resolved]
